FAERS Safety Report 13989293 (Version 1)
Quarter: 2017Q3

REPORT INFORMATION
  Report Type: Spontaneous
  Country: CA (occurrence: CA)
  Receive Date: 20170920
  Receipt Date: 20170920
  Transmission Date: 20171128
  Serious: Yes (Hospitalization)
  Sender: FDA-Public Use
  Company Number: CA-CONCORDIA PHARMACEUTICALS INC.-GSH201709-005368

PATIENT
  Age: 57 Year
  Sex: Female

DRUGS (13)
  1. ACTEMRA [Suspect]
     Active Substance: TOCILIZUMAB
     Indication: PRODUCT USED FOR UNKNOWN INDICATION
     Route: 042
  2. SULFASALAZINE. [Suspect]
     Active Substance: SULFASALAZINE
     Indication: RHEUMATOID ARTHRITIS
     Route: 048
  3. BETAHISTINE [Concomitant]
     Active Substance: BETAHISTINE
  4. REMICADE [Suspect]
     Active Substance: INFLIXIMAB
     Indication: RHEUMATOID ARTHRITIS
     Route: 042
  5. VITAMIN C [Concomitant]
     Active Substance: ASCORBIC ACID
  6. METHOTREXATE SODIUM. [Suspect]
     Active Substance: METHOTREXATE SODIUM
     Indication: RHEUMATOID ARTHRITIS
     Route: 048
  7. XELJANZ [Concomitant]
     Active Substance: TOFACITINIB CITRATE
  8. HYDROXYCHLOROQUINE [Suspect]
     Active Substance: HYDROXYCHLOROQUINE
     Indication: RHEUMATOID ARTHRITIS
     Route: 048
  9. ARAVA [Suspect]
     Active Substance: LEFLUNOMIDE
     Indication: RHEUMATOID ARTHRITIS
     Route: 048
  10. DESOXIMETASONE. [Concomitant]
     Active Substance: DESOXIMETASONE
  11. ROSUVASTATIN. [Concomitant]
     Active Substance: ROSUVASTATIN
  12. RITUXAN [Suspect]
     Active Substance: RITUXIMAB
     Indication: RHEUMATOID ARTHRITIS
     Route: 042
  13. RITUXAN [Suspect]
     Active Substance: RITUXIMAB
     Route: 042

REACTIONS (14)
  - Rheumatoid arthritis [Unknown]
  - Jaundice [Unknown]
  - Condition aggravated [Unknown]
  - Hepatitis [Unknown]
  - Vomiting [Unknown]
  - Treatment failure [Unknown]
  - Joint swelling [Unknown]
  - Hepatotoxicity [Unknown]
  - Haematemesis [Unknown]
  - Blood creatine phosphokinase increased [Unknown]
  - Nausea [Unknown]
  - Drug ineffective [Unknown]
  - Vitamin D decreased [Unknown]
  - Platelet count increased [Unknown]
